FAERS Safety Report 25859136 (Version 1)
Quarter: 2025Q3

REPORT INFORMATION
  Report Type: Report from Study
  Country: TR (occurrence: TR)
  Receive Date: 20250929
  Receipt Date: 20250929
  Transmission Date: 20251021
  Serious: Yes (Other)
  Sender: MYLAN
  Company Number: TR-MYLANLABS-2025M1083031

PATIENT
  Sex: Female

DRUGS (16)
  1. PHENYTOIN [Suspect]
     Active Substance: PHENYTOIN
     Indication: Seizure
  2. PHENYTOIN [Suspect]
     Active Substance: PHENYTOIN
     Route: 065
  3. PHENYTOIN [Suspect]
     Active Substance: PHENYTOIN
     Route: 065
  4. PHENYTOIN [Suspect]
     Active Substance: PHENYTOIN
  5. LORAZEPAM [Suspect]
     Active Substance: LORAZEPAM
     Indication: Seizure
  6. LORAZEPAM [Suspect]
     Active Substance: LORAZEPAM
     Route: 065
  7. LORAZEPAM [Suspect]
     Active Substance: LORAZEPAM
     Route: 065
  8. LORAZEPAM [Suspect]
     Active Substance: LORAZEPAM
  9. VALPROIC ACID [Concomitant]
     Active Substance: VALPROIC ACID
     Indication: Epilepsy
  10. VALPROIC ACID [Concomitant]
     Active Substance: VALPROIC ACID
     Route: 065
  11. VALPROIC ACID [Concomitant]
     Active Substance: VALPROIC ACID
     Route: 065
  12. VALPROIC ACID [Concomitant]
     Active Substance: VALPROIC ACID
  13. CLOBAZAM [Concomitant]
     Active Substance: CLOBAZAM
     Indication: Epilepsy
  14. CLOBAZAM [Concomitant]
     Active Substance: CLOBAZAM
     Route: 065
  15. CLOBAZAM [Concomitant]
     Active Substance: CLOBAZAM
     Route: 065
  16. CLOBAZAM [Concomitant]
     Active Substance: CLOBAZAM

REACTIONS (1)
  - Drug ineffective [Unknown]
